FAERS Safety Report 8934280 (Version 2)
Quarter: 2012Q4

REPORT INFORMATION
  Report Type: 
  Country: US (occurrence: US)
  Receive Date: 20121129
  Receipt Date: 20121221
  Transmission Date: 20130627
  Serious: Yes (Hospitalization)
  Sender: FDA-Public Use
  Company Number: US-PFIZER INC-2012295694

PATIENT
  Age: 78 Year
  Sex: Female
  Weight: 65.4 kg

DRUGS (5)
  1. CELEBREX [Suspect]
     Indication: RHEUMATOID ARTHRITIS
     Dosage: 200 mg, daily
     Route: 048
  2. CELEBREX [Suspect]
     Indication: ARTHRITIS
  3. NORVASC [Suspect]
     Dosage: UNK
  4. LASIX [Suspect]
     Dosage: UNK
  5. AMLODIPINE BESILATE [Concomitant]
     Indication: BLOOD PRESSURE HIGH
     Dosage: 5 mg, 2x/day
     Route: 048

REACTIONS (4)
  - Cardiac disorder [Unknown]
  - Oedema peripheral [Recovered/Resolved]
  - Blood potassium decreased [Unknown]
  - Intentional drug misuse [Unknown]
